FAERS Safety Report 8803776 (Version 1)
Quarter: 2012Q4

REPORT INFORMATION
  Report Type: 
  Country: US (occurrence: US)
  Receive Date: 20120924
  Receipt Date: 20120924
  Transmission Date: 20130627
  Serious: No
  Sender: FDA-Public Use
  Company Number: US-ASTRAZENECA-2012SE73055

PATIENT
  Age: 86 Year
  Sex: Male

DRUGS (1)
  1. CRESTOR [Suspect]
     Route: 048

REACTIONS (5)
  - Diabetes mellitus [Unknown]
  - Balance disorder [Unknown]
  - Visual impairment [Unknown]
  - Nervous system disorder [Unknown]
  - Abasia [Unknown]
